FAERS Safety Report 8238632-5 (Version None)
Quarter: 2012Q1

REPORT INFORMATION
  Report Type: 
  Country: None (occurrence: None)
  Receive Date: 20120327
  Receipt Date: 20120321
  Transmission Date: 20120608
  Serious: Yes (Other)
  Sender: FDA-Public Use
  Company Number: GB-ABBOTT-12P-167-0917494-00

PATIENT
  Sex: Female

DRUGS (1)
  1. HUMIRA [Suspect]
     Indication: PRODUCT USED FOR UNKNOWN INDICATION
     Dates: start: 20051201, end: 20120301

REACTIONS (9)
  - FATIGUE [None]
  - DIARRHOEA [None]
  - ANXIETY [None]
  - WEIGHT DECREASED [None]
  - DIZZINESS [None]
  - TREMOR [None]
  - PARAESTHESIA [None]
  - FEELING JITTERY [None]
  - NAUSEA [None]
